FAERS Safety Report 25185645 (Version 1)
Quarter: 2025Q2

REPORT INFORMATION
  Report Type: Spontaneous
  Country: FR (occurrence: FR)
  Receive Date: 20250410
  Receipt Date: 20250410
  Transmission Date: 20250717
  Serious: Yes (Other)
  Sender: MYLAN
  Company Number: None

PATIENT
  Age: 28 Year
  Sex: Male
  Weight: 90 kg

DRUGS (8)
  1. DYMISTA [Suspect]
     Active Substance: AZELASTINE HYDROCHLORIDE\FLUTICASONE PROPIONATE
     Indication: Respiratory disorder
     Dosage: 1 ARBITRARY UNITS, BID, 1 SPRAY IN THE MORNING AND 1 IN THE EVENING
     Dates: start: 20250313, end: 20250320
  2. DYMISTA [Suspect]
     Active Substance: AZELASTINE HYDROCHLORIDE\FLUTICASONE PROPIONATE
     Indication: Hypersensitivity
     Dosage: 1 ARBITRARY UNITS, BID, 1 SPRAY IN THE MORNING AND 1 IN THE EVENING
     Route: 045
     Dates: start: 20250313, end: 20250320
  3. DYMISTA [Suspect]
     Active Substance: AZELASTINE HYDROCHLORIDE\FLUTICASONE PROPIONATE
     Dosage: 1 ARBITRARY UNITS, BID, 1 SPRAY IN THE MORNING AND 1 IN THE EVENING
     Route: 045
     Dates: start: 20250313, end: 20250320
  4. DYMISTA [Suspect]
     Active Substance: AZELASTINE HYDROCHLORIDE\FLUTICASONE PROPIONATE
     Dosage: 1 ARBITRARY UNITS, BID, 1 SPRAY IN THE MORNING AND 1 IN THE EVENING
     Dates: start: 20250313, end: 20250320
  5. EBASTINE [Concomitant]
     Active Substance: EBASTINE
  6. EBASTINE [Concomitant]
     Active Substance: EBASTINE
     Route: 065
  7. EBASTINE [Concomitant]
     Active Substance: EBASTINE
     Route: 065
  8. EBASTINE [Concomitant]
     Active Substance: EBASTINE

REACTIONS (4)
  - Migraine with aura [Not Recovered/Not Resolved]
  - Asthenia [Not Recovered/Not Resolved]
  - Nausea [Not Recovered/Not Resolved]
  - Disturbance in attention [Not Recovered/Not Resolved]

NARRATIVE: CASE EVENT DATE: 20250316
